FAERS Safety Report 8146586-5 (Version None)
Quarter: 2012Q1

REPORT INFORMATION
  Report Type: 
  Country: None (occurrence: None)
  Receive Date: 20120217
  Receipt Date: 20120213
  Transmission Date: 20120608
  Serious: Yes (Other)
  Sender: FDA-Public Use
  Company Number: HR-ROXANE LABORATORIES, INC.-2012-RO-00654RO

PATIENT
  Age: 74 Year
  Sex: Male

DRUGS (4)
  1. RISPERIDONE [Suspect]
     Indication: MAJOR DEPRESSION
     Dosage: 4 MG
  2. AMITRIPTYLINE HCL [Suspect]
     Indication: MAJOR DEPRESSION
     Dosage: 75 MG
  3. RISPERIDONE [Suspect]
     Dosage: 2 MG
  4. ZOLPIDEM [Suspect]
     Indication: MAJOR DEPRESSION
     Dosage: 5 MG

REACTIONS (1)
  - CONDITION AGGRAVATED [None]
